FAERS Safety Report 21253858 (Version 2)
Quarter: 2022Q3

REPORT INFORMATION
  Report Type: Spontaneous
  Country: FR (occurrence: None)
  Receive Date: 20220825
  Receipt Date: 20220905
  Transmission Date: 20221027
  Serious: Yes (Hospitalization)
  Sender: FDA-Public Use
  Company Number: None

PATIENT
  Age: 73 Year
  Sex: Male
  Weight: 70 kg

DRUGS (4)
  1. LEVOTHYROXINE [Suspect]
     Active Substance: LEVOTHYROXINE
     Indication: Medication error
     Dosage: SCORED TABLET
     Route: 048
     Dates: start: 20220420, end: 20220420
  2. CLOZAPINE [Suspect]
     Active Substance: CLOZAPINE
     Indication: Medication error
     Route: 048
     Dates: start: 20220420, end: 20220420
  3. LOXAPINE SUCCINATE [Suspect]
     Active Substance: LOXAPINE SUCCINATE
     Indication: Medication error
     Route: 048
     Dates: start: 20220420, end: 20220420
  4. PRAZEPAM [Suspect]
     Active Substance: PRAZEPAM
     Indication: Medication error
     Route: 048
     Dates: start: 20220420, end: 20220420

REACTIONS (3)
  - Sedation [Recovered/Resolved]
  - Tachycardia [Recovered/Resolved]
  - Wrong patient [Recovered/Resolved]

NARRATIVE: CASE EVENT DATE: 20220420
